FAERS Safety Report 10454333 (Version 2)
Quarter: 2014Q3

REPORT INFORMATION
  Report Type: Spontaneous
  Country: CH (occurrence: CH)
  Receive Date: 20140915
  Receipt Date: 20140923
  Transmission Date: 20150326
  Serious: Yes (Death, Life-Threatening)
  Sender: FDA-Public Use
  Company Number: SE-MALLINCKRODT-T201403454

PATIENT
  Age: 61 Year
  Sex: Male

DRUGS (23)
  1. CORDARONE [Suspect]
     Active Substance: AMIODARONE HYDROCHLORIDE
     Indication: PRODUCT USED FOR UNKNOWN INDICATION
     Dosage: UNK
     Route: 041
     Dates: start: 20140705
  2. REOPRO [Concomitant]
     Active Substance: ABCIXIMAB
     Dosage: UNK
  3. NOVALGIN [Concomitant]
     Active Substance: METAMIZOLE SODIUM
  4. DORMICUM [Concomitant]
     Active Substance: MIDAZOLAM\MIDAZOLAM HYDROCHLORIDE
     Dosage: UNK
  5. FENTANYL CITRATE. [Concomitant]
     Active Substance: FENTANYL CITRATE
     Dosage: UNK
  6. PROPOFOL. [Concomitant]
     Active Substance: PROPOFOL
     Dosage: UNK
  7. ADRENALIN [Concomitant]
     Active Substance: EPINEPHRINE
     Dosage: UNK
  8. ASPEGIC [Concomitant]
     Active Substance: ASPIRIN DL-LYSINE
     Dosage: UNK
  9. OFIRMEV [Suspect]
     Active Substance: ACETAMINOPHEN
     Indication: PRODUCT USED FOR UNKNOWN INDICATION
     Dosage: 1 GRAM 1/6 HOUR
     Route: 041
     Dates: start: 20140703
  10. MORPHINE [Concomitant]
     Active Substance: MORPHINE
     Dosage: UNK
  11. TRACRIUM [Concomitant]
     Active Substance: ATRACURIUM BESYLATE
     Dosage: UNK
  12. ASPIRIN CARDIO [Suspect]
     Active Substance: ASPIRIN
     Indication: PRODUCT USED FOR UNKNOWN INDICATION
     Dosage: 100 MILLIGRAM 1/1 DAY
     Route: 048
     Dates: start: 20140704
  13. NOREPINEPHRINE [Concomitant]
     Active Substance: NOREPINEPHRINE\NOREPINEPHRINE BITARTRATE
     Dosage: UNK
  14. MAGNESIUM [Concomitant]
     Active Substance: MAGNESIUM
     Dosage: UNK
  15. EFIENT [Concomitant]
     Active Substance: PRASUGREL HYDROCHLORIDE
     Dosage: UNK
  16. KONAKION [Concomitant]
     Active Substance: PHYTONADIONE
     Dosage: UNK
  17. NEXIUM [Suspect]
     Active Substance: ESOMEPRAZOLE MAGNESIUM
     Indication: PRODUCT USED FOR UNKNOWN INDICATION
     Dosage: 40 MILLIGRAM 1/8 HOUR
     Route: 041
     Dates: start: 20140704, end: 20140706
  18. DOBUTAMINE [Concomitant]
     Active Substance: DOBUTAMINE\DOBUTAMINE HYDROCHLORIDE
     Dosage: UNK
  19. AUGMENTIN [Concomitant]
     Active Substance: AMOXICILLIN\CLAVULANATE POTASSIUM
     Dosage: UNK
  20. ACTRAPID [Concomitant]
     Active Substance: INSULIN HUMAN
     Dosage: UNK
  21. HEPARIN [Concomitant]
     Active Substance: HEPARIN SODIUM
     Dosage: UNK
  22. SUXAMETHONIUM CHLORIDE [Concomitant]
     Active Substance: SUCCINYLCHOLINE CHLORIDE
     Dosage: UNK
  23. ATORVASTATIN [Concomitant]
     Active Substance: ATORVASTATIN
     Dosage: UNK

REACTIONS (2)
  - Death [Fatal]
  - Coombs negative haemolytic anaemia [Unknown]

NARRATIVE: CASE EVENT DATE: 20140705
